FAERS Safety Report 10357910 (Version 1)
Quarter: 2014Q3

REPORT INFORMATION
  Report Type: Spontaneous
  Country: TW (occurrence: TW)
  Receive Date: 20140801
  Receipt Date: 20140801
  Transmission Date: 20150326
  Serious: Yes (Other)
  Sender: FDA-Public Use
  Company Number: TW-MYLAN-2014S1017485

PATIENT

DRUGS (8)
  1. CLONIDINE. [Suspect]
     Active Substance: CLONIDINE
     Indication: SALIVARY HYPERSECRETION
     Dosage: UNK
     Route: 065
  2. AMISULPRIDE [Concomitant]
     Active Substance: AMISULPRIDE
     Indication: PSYCHOTIC DISORDER
     Dosage: UNK
     Route: 065
  3. CLOZAPINE. [Suspect]
     Active Substance: CLOZAPINE
     Indication: PSYCHOTIC DISORDER
     Dosage: UNK
     Route: 065
  4. PROPRANOLOL [Suspect]
     Active Substance: PROPRANOLOL\PROPRANOLOL HYDROCHLORIDE
     Indication: AKATHISIA
     Dosage: UNK
     Route: 065
  5. CLONAZEPAM. [Suspect]
     Active Substance: CLONAZEPAM
     Indication: PSYCHOTIC DISORDER
     Dosage: UNK
     Route: 065
  6. CLONIDINE. [Suspect]
     Active Substance: CLONIDINE
     Indication: OFF LABEL USE
  7. VALPROATE [Concomitant]
     Active Substance: VALPROATE SODIUM
     Indication: PSYCHOTIC DISORDER
     Dosage: UNK
     Route: 065
  8. HALOPERIDOL. [Suspect]
     Active Substance: HALOPERIDOL
     Indication: PSYCHOTIC DISORDER
     Dosage: UNK
     Route: 065

REACTIONS (10)
  - Increased appetite [None]
  - Salivary hypersecretion [Recovering/Resolving]
  - Hallucination, auditory [None]
  - Blood triglycerides increased [Recovering/Resolving]
  - Delusion of grandeur [None]
  - Weight increased [Recovered/Resolved]
  - Abnormal behaviour [None]
  - Persecutory delusion [None]
  - Sedation [Recovering/Resolving]
  - Blood glucose increased [Recovered/Resolved]
